FAERS Safety Report 6596983-4 (Version None)
Quarter: 2010Q1

REPORT INFORMATION
  Report Type: 
  Country: None (occurrence: None)
  Receive Date: 20100223
  Receipt Date: 20100212
  Transmission Date: 20100710
  Serious: Yes (Other)
  Sender: FDA-Public Use
  Company Number: US-JNJFOC-20100204186

PATIENT
  Age: 60 Year
  Sex: Female
  Weight: 61.24 kg

DRUGS (2)
  1. TYLENOL [Suspect]
     Indication: ANIMAL BITE
  2. TYLENOL [Suspect]
     Indication: ARTHRITIS

REACTIONS (4)
  - DIARRHOEA [None]
  - NAUSEA [None]
  - PRODUCT QUALITY ISSUE [None]
  - WEIGHT DECREASED [None]
